FAERS Safety Report 14967099 (Version 1)
Quarter: 2018Q2

REPORT INFORMATION
  Report Type: Report from Study
  Country: DE (occurrence: DE)
  Receive Date: 20180604
  Receipt Date: 20180604
  Transmission Date: 20180711
  Serious: Yes (Death, Other)
  Sender: FDA-Public Use
  Company Number: DE-CHEPLA-C20170833

PATIENT

DRUGS (17)
  1. 6-THIOGUANINE [Suspect]
     Active Substance: THIOGUANINE
     Dosage: 100 MG/MM2 EVERY 12 H, D3-9
  2. CYTOSINE ARABINOSE [Suspect]
     Active Substance: CYTARABINE
     Dosage: TAD INDUCTION: 100 MG/MM2 BY CONTINUOUS INTRAV. INFUSION, DAYS 1-2
     Route: 042
  3. CYTOSINE ARABINOSE [Suspect]
     Active Substance: CYTARABINE
     Dosage: DOSE REDUCTION HAM IN PATIENTS } 60Y: SINGLE DOSE
  4. AMPHOTHERICIN B [Concomitant]
  5. COLISTINSULFATE [Concomitant]
  6. CYTOSINE ARABINOSE [Suspect]
     Active Substance: CYTARABINE
     Dosage: TAD INDUCTION: THEREAFTER 100 MG/MM2 EVERY 12 H, DAYS 3-8
  7. DAUNORUBICIN [Suspect]
     Active Substance: DAUNORUBICIN
     Dosage: MAINT.: 45 MG/MM2,D3 AND 4 (COURSE 1) MONTHLY COURSES: CUM. DOSE 540 MG/MM2
  8. CYTOSINE ARABINOSE [Suspect]
     Active Substance: CYTARABINE
     Dosage: HAM IND.: 3 G/MM2 EVERY 12H, D1-3 DOSE RED. HAM IN PAT.; 60Y: 1 DOSE 1G/MM2
  9. DAUNORUBICIN [Suspect]
     Active Substance: DAUNORUBICIN
     Dosage: INDUCTION: 60 MG/MM2, DAYS 3-5
  10. MITOXANTRONE [Suspect]
     Active Substance: MITOXANTRONE HYDROCHLORIDE
     Dosage: 10MG/MM2, DAYS 3-5
  11. CYCLOPHOSPHAMIDE. [Suspect]
     Active Substance: CYCLOPHOSPHAMIDE
     Dosage: MAINTENANCE: 1 G/MM2 I.V., DAY 3 (COURSE 3)
     Route: 042
  12. TRETINOIN. [Suspect]
     Active Substance: TRETINOIN
     Dosage: INDUCTION THERAPY WITH ATRA + TAD/HAM UNTIL COMPLETE REMISSION OR FOR MAX. 90 DAYS
  13. 6-THIOGUANINE [Suspect]
     Active Substance: THIOGUANINE
     Dosage: MAINTENANCE: 100 MG/MM2 EVERY 12 H, D1-5 (COURSES 2 AND 4)
  14. TRETINOIN. [Suspect]
     Active Substance: TRETINOIN
     Dosage: ATRA TEMPORARILY DISCONTINUED TIL SYMPTOMS RESOLVED
  15. TRETINOIN. [Suspect]
     Active Substance: TRETINOIN
     Dosage: MAINTENANCE: 7 DAYS OD ATRA
  16. COTRIMOXAZOL [Concomitant]
     Active Substance: SULFAMETHOXAZOLE\TRIMETHOPRIM
  17. CYTOSINE ARABINOSE [Suspect]
     Active Substance: CYTARABINE
     Dosage: MAINTENANCE: 100 MG/MM2 EVERY 12 H SUBCUTANEOUSLY, DAYS 1-5
     Route: 058

REACTIONS (12)
  - Cardiotoxicity [Unknown]
  - Prostate cancer [Unknown]
  - Cerebral haemorrhage [Fatal]
  - Acute myeloid leukaemia [Unknown]
  - Vena cava thrombosis [Fatal]
  - Pancreatic carcinoma [Unknown]
  - Hepatotoxicity [Unknown]
  - Mucosal inflammation [Unknown]
  - Pulmonary embolism [Fatal]
  - Cytopenia [Recovered/Resolved]
  - Acute promyelocytic leukaemia differentiation syndrome [Unknown]
  - Infection [Unknown]
